FAERS Safety Report 4801982-6 (Version None)
Quarter: 2005Q4

REPORT INFORMATION
  Report Type: 
  Country: None (occurrence: None)
  Receive Date: 20051012
  Receipt Date: 20051003
  Transmission Date: 20060501
  Serious: Yes (Disabling)
  Sender: FDA-Public Use
  Company Number: 200402138

PATIENT
  Age: 57 Year
  Sex: Female

DRUGS (1)
  1. BOTOX [Suspect]
     Indication: SKIN WRINKLING
     Dates: start: 20040205, end: 20040205

REACTIONS (21)
  - ARTHRALGIA [None]
  - BEDRIDDEN [None]
  - DIFFICULTY IN WALKING [None]
  - DROOLING [None]
  - DRUG HYPERSENSITIVITY [None]
  - DRY EYE [None]
  - ECONOMIC PROBLEM [None]
  - FACIAL PALSY [None]
  - HYPOKINESIA [None]
  - IMPAIRED WORK ABILITY [None]
  - JOINT SWELLING [None]
  - LIP DISORDER [None]
  - MALAISE [None]
  - OEDEMA PERIPHERAL [None]
  - PAIN IN EXTREMITY [None]
  - PARALYSIS [None]
  - POST PROCEDURAL COMPLICATION [None]
  - SERUM SICKNESS [None]
  - SKIN DISCOLOURATION [None]
  - SPEECH DISORDER [None]
  - SWELLING [None]
